FAERS Safety Report 11270379 (Version 3)
Quarter: 2015Q3

REPORT INFORMATION
  Report Type: Spontaneous
  Country: US (occurrence: US)
  Receive Date: 20150714
  Receipt Date: 20150817
  Transmission Date: 20151125
  Serious: No
  Sender: FDA-Public Use
  Company Number: US-PFIZER INC-2015231320

PATIENT
  Age: 89 Year
  Sex: Female

DRUGS (10)
  1. LISINOPRIL. [Concomitant]
     Active Substance: LISINOPRIL
     Indication: BLOOD PRESSURE MEASUREMENT
     Dosage: 40 MG, 1X/DAY
  2. LASIX [Concomitant]
     Active Substance: FUROSEMIDE
     Indication: POLYURIA
     Dosage: 40 MG, 1X/DAY (AS NEEDED)
  3. DETROL LA [Suspect]
     Active Substance: TOLTERODINE TARTRATE
     Dosage: 4 MG, 1X/DAY
     Dates: start: 2011
  4. LIPITOR [Concomitant]
     Active Substance: ATORVASTATIN CALCIUM
     Indication: CARDIAC DISORDER
     Dosage: 20 MG, 1X/DAY
  5. POTASSIUM [Concomitant]
     Active Substance: POTASSIUM
     Dosage: 595 MG, 1X/DAY (AS NEEDED)
  6. IRON [Concomitant]
     Active Substance: IRON
     Dosage: 65 MG, 1X/DAY
  7. VITAMIN D [Concomitant]
     Active Substance: CHOLECALCIFEROL
     Dosage: 1800 IU, 1X/DAY
  8. CALCIUM [Concomitant]
     Active Substance: CALCIUM
     Dosage: 500 MG, 1X/DAY
  9. VITAMIN D [Concomitant]
     Active Substance: CHOLECALCIFEROL
     Dosage: UNK, WEEKLY (58,000 UCA 1X/WEEK)
  10. NORVASC [Concomitant]
     Active Substance: AMLODIPINE BESYLATE
     Indication: CARDIAC DISORDER
     Dosage: 5 MG, 1X/DAY

REACTIONS (1)
  - Hypoacusis [Not Recovered/Not Resolved]

NARRATIVE: CASE EVENT DATE: 2012
